FAERS Safety Report 4688205-6 (Version None)
Quarter: 2005Q2

REPORT INFORMATION
  Report Type: 
  Country: None (occurrence: None)
  Receive Date: 20050610
  Receipt Date: 20050603
  Transmission Date: 20051028
  Serious: Yes (Hospitalization)
  Sender: FDA-Public Use
  Company Number: US-ABBOTT-05P-163-0302225-00

PATIENT
  Sex: Male
  Weight: 78.542 kg

DRUGS (6)
  1. COLCHICINE [Suspect]
     Indication: GOUT
     Route: 048
     Dates: start: 20050520, end: 20050520
  2. ACETYLSALICYLIC ACID [Concomitant]
     Indication: CARDIAC DISORDER
     Route: 048
  3. METAPRONOLOL [Concomitant]
     Indication: CARDIAC DISORDER
     Route: 048
  4. FOSINOPRIL SODIUM [Concomitant]
     Indication: CARDIAC DISORDER
     Route: 048
  5. NIFEDIPINE [Concomitant]
     Indication: BLOOD PRESSURE INCREASED
     Route: 048
  6. SIMVASTATIN [Concomitant]
     Indication: BLOOD CHOLESTEROL INCREASED
     Route: 048

REACTIONS (1)
  - CHEST PAIN [None]
